FAERS Safety Report 22258618 (Version 1)
Quarter: 2023Q2

REPORT INFORMATION
  Report Type: Spontaneous
  Country: CN (occurrence: CN)
  Receive Date: 20230427
  Receipt Date: 20230427
  Transmission Date: 20230721
  Serious: Yes (Hospitalization, Other)
  Sender: FDA-Public Use
  Company Number: CN-MLMSERVICE-20230413-4209349-1

PATIENT
  Age: 49 Year
  Sex: Male

DRUGS (9)
  1. CLOPIDOGREL [Interacting]
     Active Substance: CLOPIDOGREL BISULFATE
     Indication: Antiplatelet therapy
     Dosage: PER EVENING
     Route: 048
     Dates: start: 202104
  2. REPAGLINIDE [Interacting]
     Active Substance: REPAGLINIDE
     Indication: Diabetic nephropathy
     Dosage: REDUCED THE DOSE OF REPAGLINIDE TO TWICE DAILY, 1 MG IN THE MORNING AND 0.5 MG AT NOON
     Dates: start: 202104, end: 202104
  3. KALLIDINOGENASE [Concomitant]
     Active Substance: KALLIDINOGENASE
  4. HIRUDIN [Concomitant]
     Active Substance: HIRUDIN
  5. ATORVASTATIN CALCIUM [Concomitant]
     Active Substance: ATORVASTATIN CALCIUM
  6. UROKINASE [Concomitant]
     Active Substance: UROKINASE
     Indication: Thrombolysis
  7. NIFEDIPINE [Concomitant]
     Active Substance: NIFEDIPINE
     Indication: Hypertension
  8. REPAGLINIDE [Interacting]
     Active Substance: REPAGLINIDE
     Indication: Diabetic nephropathy
     Dosage: 1 MG OF REPAGLINIDE IN THE MORNING, 2 MG AT NOON, AND 1 MG IN THE EVENING
     Dates: end: 202104
  9. REPAGLINIDE [Interacting]
     Active Substance: REPAGLINIDE
     Indication: Type 2 diabetes mellitus
     Dosage: REDUCED THE DOSE OF REPAGLINIDE TO TWICE DAILY, 1 MG IN THE MORNING AND 0.5 MG AT NOON
     Dates: start: 202104, end: 202104

REACTIONS (2)
  - Drug interaction [Unknown]
  - Hypoglycaemia [Recovered/Resolved]

NARRATIVE: CASE EVENT DATE: 20210401
